FAERS Safety Report 4494901-6 (Version None)
Quarter: 2004Q4

REPORT INFORMATION
  Report Type: 
  Country: None (occurrence: None)
  Receive Date: 20041103
  Receipt Date: 20041025
  Transmission Date: 20050328
  Serious: Yes (Other)
  Sender: FDA-Public Use
  Company Number: 2004-10-1759

PATIENT
  Age: 20 Year
  Sex: Male

DRUGS (2)
  1. INTRON A [Suspect]
     Indication: HAEMANGIOMA
     Dosage: SEE IMAGE
     Route: 058
     Dates: end: 20040101
  2. INTRON A [Suspect]
     Indication: HAEMANGIOMA
     Dosage: SEE IMAGE
     Route: 058
     Dates: start: 20040101

REACTIONS (4)
  - BONE DISORDER [None]
  - EYE IRRITATION [None]
  - PERIODONTAL DISEASE [None]
  - VISUAL DISTURBANCE [None]
